FAERS Safety Report 21796337 (Version 2)
Quarter: 2023Q1

REPORT INFORMATION
  Report Type: Spontaneous
  Country: US (occurrence: US)
  Receive Date: 20221229
  Receipt Date: 20230103
  Transmission Date: 20230417
  Serious: Yes (Hospitalization, Other)
  Sender: FDA-Public Use
  Company Number: US-009507513-2212USA008324

PATIENT
  Sex: Male

DRUGS (13)
  1. STROMECTOL [Suspect]
     Active Substance: IVERMECTIN
     Indication: COVID-19
     Dosage: ESCALATING DOSES UP TO 100 MG
  2. ARCTOSTAPHYLOS UVA-URSI LEAF [Suspect]
     Active Substance: ARCTOSTAPHYLOS UVA-URSI LEAF
     Indication: Supplementation therapy
  3. HERBALS [Suspect]
     Active Substance: HERBALS
     Indication: Supplementation therapy
  4. SERRAPEPTASE [Suspect]
     Active Substance: SERRAPEPTASE
     Indication: Supplementation therapy
  5. HERBALS [Suspect]
     Active Substance: HERBALS
     Indication: Supplementation therapy
  6. SCHISANDRA CHINENSIS FRUIT [Suspect]
     Active Substance: SCHISANDRA CHINENSIS FRUIT
     Indication: Supplementation therapy
  7. HERBALS [Suspect]
     Active Substance: HERBALS
     Indication: Supplementation therapy
  8. FUCUS VESICULOSUS [Suspect]
     Active Substance: FUCUS VESICULOSUS
     Indication: Supplementation therapy
  9. DANDELION [Suspect]
     Active Substance: TARAXACUM OFFICINALE POLLEN
     Indication: Supplementation therapy
  10. AZADIRACHTA INDICA BARK [Suspect]
     Active Substance: AZADIRACHTA INDICA BARK
     Indication: Supplementation therapy
  11. URTICA DIOICA LEAF [Suspect]
     Active Substance: URTICA DIOICA LEAF
     Indication: Supplementation therapy
  12. NIACIN [Suspect]
     Active Substance: NIACIN
     Indication: Supplementation therapy
  13. DIETARY SUPPLEMENT [Suspect]
     Active Substance: DIETARY SUPPLEMENT
     Indication: Supplementation therapy

REACTIONS (3)
  - Acute hepatic failure [Unknown]
  - Product use in unapproved indication [Unknown]
  - Prescription drug used without a prescription [Unknown]
